FAERS Safety Report 9210461 (Version 2)
Quarter: 2013Q2

REPORT INFORMATION
  Report Type: Report from Study
  Country: DE (occurrence: DE)
  Receive Date: 20130404
  Receipt Date: 20130412
  Transmission Date: 20140414
  Serious: No
  Sender: FDA-Public Use
  Company Number: DE-ABBOTT-13P-062-1065738-00

PATIENT
  Age: 51 Year
  Sex: Female
  Weight: 53 kg

DRUGS (1)
  1. HUMIRA [Suspect]
     Indication: RHEUMATOID ARTHRITIS
     Route: 058
     Dates: start: 20090604, end: 20120529

REACTIONS (1)
  - Liver function test abnormal [Recovered/Resolved]
